FAERS Safety Report 4554199-7 (Version None)
Quarter: 2004Q4

REPORT INFORMATION
  Report Type: 
  Country: None (occurrence: None)
  Receive Date: 20041230
  Receipt Date: 20040622
  Transmission Date: 20050328
  Serious: Yes (Hospitalization)
  Sender: FDA-Public Use
  Company Number: 04-06-0894

PATIENT
  Age: 55 Year
  Sex: Male
  Weight: 64.8644 kg

DRUGS (6)
  1. CLOZAPINE [Suspect]
     Indication: DEPRESSION
     Dosage: 800MG QD ORAL
     Route: 048
     Dates: start: 19991201
  2. ABILIFY [Concomitant]
  3. SENNA S [Concomitant]
  4. SEROQUEL [Concomitant]
  5. LEXAPRO [Concomitant]
  6. BENZTROPINE MESYLATE [Concomitant]

REACTIONS (2)
  - ANXIETY [None]
  - PANIC ATTACK [None]
